FAERS Safety Report 12483735 (Version 1)
Quarter: 2016Q2

REPORT INFORMATION
  Report Type: Spontaneous
  Country: US (occurrence: None)
  Receive Date: 20160620
  Receipt Date: 20160620
  Transmission Date: 20160815
  Serious: Yes (Other)
  Sender: FDA-Public Use
  Company Number: None

PATIENT
  Age: 62 Year
  Sex: Male

DRUGS (2)
  1. COZAAR [Concomitant]
     Active Substance: LOSARTAN POTASSIUM
  2. TASIGNA [Suspect]
     Active Substance: NILOTINIB
     Indication: METASTATIC NEOPLASM
     Dosage: 2 CAPS BID ORAL
     Route: 048
     Dates: start: 20160401

REACTIONS (4)
  - Pruritus [None]
  - Therapy change [None]
  - Bone pain [None]
  - Gait disturbance [None]

NARRATIVE: CASE EVENT DATE: 201606
